FAERS Safety Report 16130757 (Version 1)
Quarter: 2019Q1

REPORT INFORMATION
  Report Type: Spontaneous
  Country: US (occurrence: US)
  Receive Date: 20190328
  Receipt Date: 20190328
  Transmission Date: 20190418
  Serious: No
  Sender: FDA-Public Use
  Company Number: US-INDIVIOR LIMITED-INDV-116889-2019

PATIENT
  Age: 39 Year
  Sex: Female

DRUGS (5)
  1. BUPRENORPHINE/NALOXONE TABLET GENERIC [Suspect]
     Active Substance: BUPRENORPHINE\NALOXONE
     Dosage: 24MG, QD
     Route: 065
     Dates: start: 20181020
  2. SUBOXONE [Suspect]
     Active Substance: BUPRENORPHINE HYDROCHLORIDE\NALOXONE HYDROCHLORIDE
     Indication: DRUG DEPENDENCE
     Dosage: UNK
     Route: 065
     Dates: start: 201812
  3. SUBLOCADE [Suspect]
     Active Substance: BUPRENORPHINE
     Indication: DRUG USE DISORDER
     Dosage: 300 MG, QMO (THREE DOSES)
     Route: 058
     Dates: start: 20181020, end: 20190113
  4. BUPRENORPHINE/NALOXONE TABLET GENERIC [Suspect]
     Active Substance: BUPRENORPHINE\NALOXONE
     Indication: DRUG DEPENDENCE
     Dosage: 24MG, QD
     Route: 065
     Dates: start: 20170115, end: 20181020
  5. SUBOXONE [Suspect]
     Active Substance: BUPRENORPHINE HYDROCHLORIDE\NALOXONE HYDROCHLORIDE
     Indication: DRUG DEPENDENCE
     Dosage: 8 MILLIGRAM, QD
     Route: 065
     Dates: start: 201810

REACTIONS (24)
  - Thinking abnormal [Recovered/Resolved]
  - Malaise [Unknown]
  - Injection site discolouration [Unknown]
  - Injection site infection [Recovered/Resolved]
  - Drug dependence [Unknown]
  - Piloerection [Unknown]
  - Rash erythematous [Recovered/Resolved]
  - Hypersensitivity [Recovered/Resolved]
  - Agitation [Unknown]
  - Injection site inflammation [Recovered/Resolved]
  - Tongue discomfort [Recovered/Resolved]
  - Back pain [Unknown]
  - Diarrhoea [Unknown]
  - Disturbance in attention [Unknown]
  - Tongue eruption [Recovered/Resolved]
  - Hyperhidrosis [Recovered/Resolved]
  - Muscle spasms [Unknown]
  - Drug withdrawal syndrome [Unknown]
  - Rash pruritic [Recovered/Resolved]
  - Tongue blistering [Recovered/Resolved]
  - Injection site warmth [Recovered/Resolved]
  - Injection site pain [Recovered/Resolved]
  - Fatigue [Recovered/Resolved]
  - Substance abuse [Unknown]

NARRATIVE: CASE EVENT DATE: 2018
